FAERS Safety Report 9293882 (Version 1)
Quarter: 2013Q1

REPORT INFORMATION
  Report Type: Spontaneous
  Country: US (occurrence: None)
  Receive Date: 20121217
  Receipt Date: 20121217
  Transmission Date: 20140127
  Serious: Yes (Other)
  Sender: FDA-Public Use
  Company Number: 1000027056

PATIENT
  Age: 53 Year
  Sex: Female

DRUGS (5)
  1. NAMENDA [Suspect]
     Indication: MIGRAINE
     Route: 048
     Dates: start: 20111229, end: 20120101
  2. TRAZODONE (TRAZODONE) (TRAZODONE) [Concomitant]
  3. KEPPRA (LEVETIRACETAM) [Concomitant]
  4. MAXALT (RIZATRIPTAN) (RIZATRIPTAN) [Concomitant]
  5. HORMONE THERAPY (NOS) (HORMONE THERAPY (NOS)) (HORMONE THERAPY (NOS)) [Concomitant]

REACTIONS (3)
  - Dizziness [None]
  - Off label use [None]
  - Transient global amnesia [None]
